FAERS Safety Report 10479409 (Version 4)
Quarter: 2018Q1

REPORT INFORMATION
  Report Type: Report from Study
  Country: CA (occurrence: CA)
  Receive Date: 20140926
  Receipt Date: 20180214
  Transmission Date: 20180508
  Serious: Yes (Death, Other)
  Sender: FDA-Public Use
  Company Number: CA-009507513-1409CAN010487

PATIENT
  Age: 72 Year
  Sex: Female
  Weight: 45.4 kg

DRUGS (9)
  1. COZAAR [Suspect]
     Active Substance: LOSARTAN POTASSIUM
     Indication: PRODUCT USED FOR UNKNOWN INDICATION
     Dosage: UNK
     Route: 065
     Dates: end: 2011
  2. ASPIRIN. [Concomitant]
     Active Substance: ASPIRIN
     Route: 065
  3. METHYLPREDNISOLONE. [Concomitant]
     Active Substance: METHYLPREDNISOLONE
     Indication: PREMEDICATION
     Dosage: DOSE: 100 MG, FREQUENCY: UNKNOWN, THERAPY DURATION: 4 YEARS
     Route: 042
     Dates: start: 20111025, end: 20141014
  4. PREDNISOLONE SODIUM PHOSPHATE. [Concomitant]
     Active Substance: PREDNISOLONE SODIUM PHOSPHATE
     Indication: PREMEDICATION
     Dosage: 100 MG, UNK
     Route: 042
     Dates: start: 20101014, end: 20101014
  5. WARFARIN [Suspect]
     Active Substance: WARFARIN
     Indication: PRODUCT USED FOR UNKNOWN INDICATION
     Dosage: UNK
     Route: 065
     Dates: end: 201211
  6. CYANOCOBALAMIN. [Concomitant]
     Active Substance: CYANOCOBALAMIN
     Route: 065
  7. RITUXAN [Suspect]
     Active Substance: RITUXIMAB
     Indication: RHEUMATOID ARTHRITIS
     Dosage: DOSE 1000 MG, FREQUENCY: DAY 1 AND 15, DURATION: 5 YEARS, LAST DOSE ALSO REPORTED AS 09-OCT-2013
     Route: 042
     Dates: start: 20101014, end: 20141014
  8. DIPHENHYDRAMINE HYDROCHLORIDE. [Concomitant]
     Active Substance: DIPHENHYDRAMINE HYDROCHLORIDE
     Indication: PREMEDICATION
     Dosage: DOSE: 50 MG, FREQUENCY: UNKNOWN, THERAPY DURATION: 5 YEARS
     Route: 048
     Dates: start: 20101014, end: 20101014
  9. ACETAMINOPHEN. [Concomitant]
     Active Substance: ACETAMINOPHEN
     Indication: PREMEDICATION
     Dosage: DOSE: 1000 MG, FREQUENCY: UNKNOWN, THERAPY DURATION: 5 YEARS
     Route: 048
     Dates: start: 20101014, end: 20101014

REACTIONS (9)
  - Nerve injury [Not Recovered/Not Resolved]
  - Discomfort [Not Recovered/Not Resolved]
  - Pain [Not Recovered/Not Resolved]
  - Dementia [Fatal]
  - Muscle injury [Unknown]
  - Haemorrhagic stroke [Unknown]
  - Weight decreased [Not Recovered/Not Resolved]
  - Peroneal nerve palsy [Not Recovered/Not Resolved]
  - Skin ulcer [Recovered/Resolved]

NARRATIVE: CASE EVENT DATE: 2011
